FAERS Safety Report 15516255 (Version 1)
Quarter: 2018Q4

REPORT INFORMATION
  Report Type: Spontaneous
  Country: NL (occurrence: NL)
  Receive Date: 20181017
  Receipt Date: 20181017
  Transmission Date: 20190205
  Serious: Yes (Other)
  Sender: FDA-Public Use
  Company Number: NL-TERSERA THERAPEUTICS LLC-TSR2017000695

PATIENT

DRUGS (2)
  1. ZYTIGA [Concomitant]
     Active Substance: ABIRATERONE ACETATE
     Indication: PRODUCT USED FOR UNKNOWN INDICATION
     Dosage: UNK
     Route: 065
     Dates: start: 20170510
  2. ZOLADEX [Suspect]
     Active Substance: GOSERELIN ACETATE
     Indication: PROSTATE CANCER
     Dosage: 10.8 MILLIGRAM Q3MO
     Route: 058
     Dates: start: 20170301

REACTIONS (7)
  - Malignant neoplasm progression [Unknown]
  - Hypoaesthesia [Unknown]
  - Fatigue [Unknown]
  - General physical health deterioration [Unknown]
  - Ligament sprain [Unknown]
  - Nail disorder [Unknown]
  - Alopecia [Unknown]
